FAERS Safety Report 7197028-8 (Version None)
Quarter: 2010Q4

REPORT INFORMATION
  Report Type: 
  Country: None (occurrence: None)
  Receive Date: 20101224
  Receipt Date: 20101215
  Transmission Date: 20110411
  Serious: Yes (Other)
  Sender: FDA-Public Use
  Company Number: PHHY2010FR86032

PATIENT
  Sex: Male

DRUGS (1)
  1. LAMISIL [Suspect]
     Indication: FUNGAL INFECTION
     Dosage: 250 MG
     Route: 048
     Dates: start: 20081201, end: 20090401

REACTIONS (18)
  - ASTHENIA [None]
  - CHEILITIS [None]
  - CYTOLYTIC HEPATITIS [None]
  - DERMATITIS EXFOLIATIVE [None]
  - DRY MOUTH [None]
  - DYSGLOBULINAEMIA [None]
  - GAMMA-GLUTAMYLTRANSFERASE INCREASED [None]
  - GENERAL PHYSICAL HEALTH DETERIORATION [None]
  - GENERALISED ERYTHEMA [None]
  - HYPERKERATOSIS [None]
  - RASH GENERALISED [None]
  - SKIN DISORDER [None]
  - SKIN FISSURES [None]
  - SKIN LESION [None]
  - SMOOTH MUSCLE ANTIBODY POSITIVE [None]
  - VASCULITIS [None]
  - VULVOVAGINAL DRYNESS [None]
  - WEIGHT DECREASED [None]
